FAERS Safety Report 4659600-6 (Version None)
Quarter: 2005Q2

REPORT INFORMATION
  Report Type: 
  Country: None (occurrence: None)
  Receive Date: 20050510
  Receipt Date: 20050429
  Transmission Date: 20051028
  Serious: Yes (Life-Threatening, Disabling, Congenital Anomaly)
  Sender: FDA-Public Use
  Company Number: 2005067586

PATIENT
  Age: 1 Year
  Sex: Male
  Weight: 3 kg

DRUGS (3)
  1. XANAX [Suspect]
     Indication: ILL-DEFINED DISORDER
     Route: 064
  2. BUSPIRONE HCL [Suspect]
     Indication: ILL-DEFINED DISORDER
     Route: 064
  3. CITALOPRAM [Suspect]
     Indication: ILL-DEFINED DISORDER
     Route: 064

REACTIONS (8)
  - CLEFT UVULA [None]
  - DRUG EXPOSURE DURING PREGNANCY [None]
  - EPIPHYSEAL DISORDER [None]
  - GLOSSOPTOSIS [None]
  - MULTIPLE CONGENITAL ABNORMALITIES [None]
  - PIERRE ROBIN SYNDROME [None]
  - TALIPES [None]
  - VENTRICULAR SEPTAL DEFECT [None]
